FAERS Safety Report 5809651-0 (Version None)
Quarter: 2008Q3

REPORT INFORMATION
  Report Type: 
  Country: None (occurrence: None)
  Receive Date: 20080711
  Receipt Date: 20080711
  Transmission Date: 20090109
  Serious: Yes (Hospitalization)
  Sender: FDA-Public Use
  Company Number: None

PATIENT
  Sex: Female
  Weight: 77.5 kg

DRUGS (2)
  1. PACLITAXEL [Suspect]
     Dosage: 420 MG
  2. LEVOTHYROXINE SODIUM [Concomitant]

REACTIONS (3)
  - CELLULITIS [None]
  - HYPOTENSION [None]
  - INFECTION [None]
